FAERS Safety Report 9382174 (Version 1)
Quarter: 2013Q3

REPORT INFORMATION
  Report Type: Spontaneous
  Country: US (occurrence: US)
  Receive Date: 20130703
  Receipt Date: 20130703
  Transmission Date: 20140515
  Serious: Yes (Other)
  Sender: FDA-Public Use
  Company Number: US-AMGEN-USASP2013046327

PATIENT
  Age: 73 Year
  Sex: Female

DRUGS (12)
  1. PROLIA [Suspect]
     Indication: OSTEOPOROSIS POSTMENOPAUSAL
     Dosage: UNK
     Dates: start: 20130517
  2. ATENOLOL [Concomitant]
     Dosage: 25 MG, QD
  3. LEVOTHYROXINE [Concomitant]
     Dosage: 0.25 MG, QD
  4. HYDROCHLOROTHIAZIDE [Concomitant]
     Dosage: 12.5 MG, QD
  5. BABY ASPIRIN [Concomitant]
     Dosage: 81 MG, QD
  6. RANITIDINE [Concomitant]
     Dosage: 150 MG, BID
  7. VITAMIN E                          /00110501/ [Concomitant]
     Dosage: 1
  8. VITAMIN C                          /00008001/ [Concomitant]
     Dosage: 500 MG, QD
  9. CALCIUM [Concomitant]
     Dosage: 600 MG, BID
  10. VITAMIN D                          /00107901/ [Concomitant]
     Dosage: 400 IU, BID
  11. IBUPROFEN [Concomitant]
     Dosage: 200 MG, TID
  12. MULTIVITAMIN                       /07504101/ [Concomitant]

REACTIONS (2)
  - Arthropathy [Unknown]
  - Toothache [Unknown]
